FAERS Safety Report 21340135 (Version 2)
Quarter: 2022Q3

REPORT INFORMATION
  Report Type: Spontaneous
  Country: DE (occurrence: DE)
  Receive Date: 20220916
  Receipt Date: 20220928
  Transmission Date: 20221026
  Serious: Yes (Other)
  Sender: FDA-Public Use
  Company Number: DE-NOVOPROD-946175

PATIENT
  Age: 55 Year
  Sex: Female

DRUGS (8)
  1. NOVORAPID [Suspect]
     Active Substance: INSULIN ASPART
     Dosage: UNK (DOSE INCREASED)
     Route: 058
  2. NOVORAPID [Suspect]
     Active Substance: INSULIN ASPART
     Dosage: NEW CARTRIDGE
     Route: 058
  3. NOVORAPID [Suspect]
     Active Substance: INSULIN ASPART
     Dosage: 21 BASAL (NO UNIT REPORTED)
     Route: 058
  4. NOVORAPID [Suspect]
     Active Substance: INSULIN ASPART
     Dosage: 21 BASAL (NO UNIT REPORTED)
     Route: 058
  5. NOVORAPID [Suspect]
     Active Substance: INSULIN ASPART
     Indication: Type 1 diabetes mellitus
     Dosage: 21 BASAL (NO UNIT REPORTED)
     Route: 058
  6. NOVORAPID [Suspect]
     Active Substance: INSULIN ASPART
     Dosage: 21 BASAL (NO UNIT REPORTED)
     Route: 058
  7. GABAPENTIN [Concomitant]
     Active Substance: GABAPENTIN
     Indication: Pain
     Dosage: 1-1-1-2 (QD)
     Route: 048
  8. NEUPRO [Concomitant]
     Active Substance: ROTIGOTINE
     Indication: Pain
     Dosage: 1 MG, QD(1 MG/24 HOURS

REACTIONS (2)
  - Diabetic ketoacidosis [Unknown]
  - Drug ineffective [Unknown]
